FAERS Safety Report 7698984-1 (Version None)
Quarter: 2011Q3

REPORT INFORMATION
  Report Type: 
  Country: None (occurrence: None)
  Receive Date: 20110819
  Receipt Date: 20110817
  Transmission Date: 20111222
  Serious: Yes (Hospitalization, Other)
  Sender: FDA-Public Use
  Company Number: US-PFIZER INC-2011190452

PATIENT
  Sex: Male
  Weight: 83.9 kg

DRUGS (1)
  1. HYDROCORTISONE SODIUM SUCCINATE [Suspect]
     Indication: DRUG HYPERSENSITIVITY
     Dosage: UNK
     Dates: start: 19560101, end: 19560101

REACTIONS (5)
  - IMMUNE SYSTEM DISORDER [None]
  - FUNGAL INFECTION [None]
  - PNEUMONIA [None]
  - EAR INFECTION [None]
  - HYPERTENSION [None]
